FAERS Safety Report 5882841-7 (Version None)
Quarter: 2008Q3

REPORT INFORMATION
  Report Type: 
  Country: None (occurrence: None)
  Receive Date: 20080913
  Receipt Date: 20080818
  Transmission Date: 20090109
  Serious: No
  Sender: FDA-Public Use
  Company Number: US-ABBOTT-08P-163-0471532-00

PATIENT
  Sex: Female
  Weight: 90.8 kg

DRUGS (2)
  1. HUMIRA [Suspect]
     Indication: RHEUMATOID ARTHRITIS
     Route: 050
  2. BENADRYL [Concomitant]
     Indication: HYPERSENSITIVITY
     Dosage: 25 MG -2, AS NEEDED, USUALLY 5 IN 1 W
     Route: 048

REACTIONS (3)
  - FATIGUE [None]
  - NODULE ON EXTREMITY [None]
  - PAIN [None]
